FAERS Safety Report 5381991-1 (Version None)
Quarter: 2007Q3

REPORT INFORMATION
  Report Type: 
  Country: None (occurrence: None)
  Receive Date: 20070709
  Receipt Date: 20070705
  Transmission Date: 20080115
  Serious: No
  Sender: FDA-Public Use
  Company Number: B0474730A

PATIENT
  Age: 71 Year
  Sex: Male

DRUGS (4)
  1. VALTREX [Suspect]
     Indication: HERPES ZOSTER
     Route: 048
     Dates: start: 20070608, end: 20070610
  2. ACTOS [Concomitant]
     Route: 048
  3. OLMESARTAN MEDOXOMIL [Concomitant]
     Route: 048
  4. FUROSEMIDE [Concomitant]
     Route: 065

REACTIONS (5)
  - ACCIDENTAL OVERDOSE [None]
  - DIZZINESS [None]
  - DYSARTHRIA [None]
  - LOSS OF CONTROL OF LEGS [None]
  - NERVOUS SYSTEM DISORDER [None]
